FAERS Safety Report 24857288 (Version 1)
Quarter: 2025Q1

REPORT INFORMATION
  Report Type: Spontaneous
  Country: CY (occurrence: None)
  Receive Date: 20250117
  Receipt Date: 20250117
  Transmission Date: 20250409
  Serious: Yes (Disabling)
  Sender: FDA-CTU
  Company Number: None

PATIENT
  Age: 28 Year
  Sex: Male
  Weight: 80 kg

DRUGS (4)
  1. FLUVOXAMINE [Suspect]
     Active Substance: FLUVOXAMINE
     Indication: Anxiety
     Route: 048
     Dates: start: 20220601, end: 20230306
  2. FLUVOXAMINE [Suspect]
     Active Substance: FLUVOXAMINE
     Indication: Affective disorder
  3. MAGNESIUM L-THREONATE [Concomitant]
  4. OMEGA 3 [Concomitant]
     Active Substance: CAPSAICIN

REACTIONS (8)
  - Anhedonia [None]
  - Libido decreased [None]
  - Emotional poverty [None]
  - Fatigue [None]
  - Apathy [None]
  - Paraesthesia [None]
  - Burning sensation [None]
  - Drug withdrawal syndrome [None]

NARRATIVE: CASE EVENT DATE: 20230306
